FAERS Safety Report 16077555 (Version 2)
Quarter: 2019Q1

REPORT INFORMATION
  Report Type: Spontaneous
  Country: ES (occurrence: ES)
  Receive Date: 20190315
  Receipt Date: 20190322
  Transmission Date: 20190418
  Serious: Yes (Death, Hospitalization)
  Sender: FDA-Public Use
  Company Number: ES-PFIZER INC-2019113113

PATIENT
  Age: 57 Year
  Sex: Female

DRUGS (1)
  1. METOTREXATO WYETH [Suspect]
     Active Substance: METHOTREXATE SODIUM
     Indication: PSORIASIS
     Dosage: 5 MG, 1X/DAY (EVERY 24 HOURS)
     Route: 048
     Dates: start: 20190214, end: 20190223

REACTIONS (4)
  - Gastrointestinal haemorrhage [Fatal]
  - Incorrect product dosage form administered [Fatal]
  - Sepsis [Fatal]
  - Bone marrow failure [Fatal]

NARRATIVE: CASE EVENT DATE: 20190214
